FAERS Safety Report 4271682-2 (Version None)
Quarter: 2004Q1

REPORT INFORMATION
  Report Type: 
  Country: None (occurrence: None)
  Receive Date: 20040113
  Receipt Date: 20031227
  Transmission Date: 20041129
  Serious: Yes (Hospitalization)
  Sender: FDA-Public Use
  Company Number: BRO-006966

PATIENT
  Age: 44 Year
  Sex: Male

DRUGS (2)
  1. IOPAMIDOL-300 [Suspect]
     Indication: COMPUTERISED TOMOGRAM
     Route: 042
     Dates: start: 20031204, end: 20031204
  2. IOPAMIDOL-300 [Suspect]
     Indication: OESOPHAGEAL CARCINOMA
     Route: 042
     Dates: start: 20031204, end: 20031204

REACTIONS (4)
  - ABASIA [None]
  - FEELING HOT [None]
  - PYREXIA [None]
  - STEVENS-JOHNSON SYNDROME [None]
